FAERS Safety Report 4348802-4 (Version None)
Quarter: 2004Q2

REPORT INFORMATION
  Report Type: 
  Country: None (occurrence: None)
  Receive Date: 20040423
  Receipt Date: 20040416
  Transmission Date: 20050107
  Serious: Yes (Hospitalization, Other)
  Sender: FDA-Public Use
  Company Number: 2001059691FR

PATIENT
  Age: 94 Year
  Sex: Female

DRUGS (9)
  1. CELEBREX [Suspect]
     Indication: OSTEOARTHRITIS
     Dosage: 200 MG, QD, ORAL
     Route: 048
     Dates: start: 20010318, end: 20010407
  2. TANAKAN (GINKGO TREE LEAVES EXTRACT) [Suspect]
     Dosage: TID, ORAL
     Route: 048
     Dates: start: 20000208, end: 20010407
  3. DIFFU K [Concomitant]
  4. EQUANIL [Concomitant]
  5. ACETAMINOPHEN [Concomitant]
  6. LORAZEPAM [Concomitant]
  7. MELLERIL (THIORIDAZINE HYDROCHLORIDE) [Concomitant]
  8. PROZAC [Concomitant]
  9. MOPRAL [Concomitant]

REACTIONS (5)
  - CHEILITIS [None]
  - ENANTHEMA [None]
  - ERYTHEMA MULTIFORME [None]
  - PURPURA [None]
  - TOXIC SKIN ERUPTION [None]
